FAERS Safety Report 21265245 (Version 3)
Quarter: 2022Q3

REPORT INFORMATION
  Report Type: Report from Study
  Country: CA (occurrence: CA)
  Receive Date: 20220829
  Receipt Date: 20220920
  Transmission Date: 20221027
  Serious: Yes (Other)
  Sender: FDA-Public Use
  Company Number: CA-BRISTOL-MYERS SQUIBB COMPANY-2022-069504

PATIENT
  Age: 79 Year
  Sex: Female
  Weight: 131 kg

DRUGS (13)
  1. ORENCIA [Suspect]
     Active Substance: ABATACEPT
     Indication: Rheumatoid arthritis
     Route: 042
     Dates: start: 20110720, end: 202205
  2. JAMP CALCIUM [Concomitant]
     Indication: Product used for unknown indication
     Dosage: 500MG ,1 TABLET TWICE A DAY WITH BREAKFAST AND SUPPER.
     Route: 065
  3. ERGOCALCIFEROL [Concomitant]
     Active Substance: ERGOCALCIFEROL
     Indication: Product used for unknown indication
     Dosage: 10,000UI, 2 TABLETS ONCE A WEEK ALWAYS ON THE SAME DAY
     Route: 065
  4. PROLIA [Concomitant]
     Active Substance: DENOSUMAB
     Indication: Product used for unknown indication
     Dosage: 60MG/1ML INJ.SYRINGE1 SUBCUTANEOUS INJECTION EVERY 6 MONTHS
     Route: 058
  5. PYRAZOLONE DERIVATIVES [Concomitant]
     Indication: Product used for unknown indication
     Route: 065
  6. PREDNISONE [Concomitant]
     Active Substance: PREDNISONE
     Indication: Product used for unknown indication
     Dosage: 1MG 1 TABLET DAILY WITH BREAKFAST
     Route: 065
  7. LYRICA [Concomitant]
     Active Substance: PREGABALIN
     Indication: Product used for unknown indication
     Route: 065
  8. SYNTHROID [Concomitant]
     Active Substance: LEVOTHYROXINE SODIUM
     Indication: Product used for unknown indication
     Route: 065
  9. IRON [IRON DEXTRAN] [Concomitant]
     Indication: Product used for unknown indication
     Route: 065
  10. HYDROXYCHLOROQUINE [Concomitant]
     Active Substance: HYDROXYCHLOROQUINE
     Indication: Product used for unknown indication
     Route: 065
  11. LASIX [Concomitant]
     Active Substance: FUROSEMIDE
     Indication: Product used for unknown indication
     Route: 065
  12. ALVESCO [Concomitant]
     Active Substance: CICLESONIDE
     Indication: Product used for unknown indication
     Route: 065
  13. VENTOLIN [Concomitant]
     Active Substance: ALBUTEROL SULFATE
     Indication: Product used for unknown indication
     Route: 065

REACTIONS (14)
  - Musculoskeletal stiffness [Unknown]
  - Insomnia [Unknown]
  - Osteoarthritis [Unknown]
  - Weight decreased [Unknown]
  - Inappropriate schedule of product administration [Unknown]
  - Cystitis [Unknown]
  - Urinary tract infection [Unknown]
  - Breast cancer [Unknown]
  - Arthralgia [Unknown]
  - Arthritis [Unknown]
  - Pain [Unknown]
  - Movement disorder [Unknown]
  - Arthropathy [Unknown]
  - Hot flush [Unknown]

NARRATIVE: CASE EVENT DATE: 20220101
